FAERS Safety Report 9918307 (Version 4)
Quarter: 2014Q3

REPORT INFORMATION
  Report Type: Spontaneous
  Country: FR (occurrence: FR)
  Receive Date: 20140224
  Receipt Date: 20140707
  Transmission Date: 20150326
  Serious: Yes (Hospitalization, Other)
  Sender: FDA-Public Use
  Company Number: FR-PFIZER INC-2014044030

PATIENT
  Sex: Male
  Weight: 2.21 kg

DRUGS (2)
  1. ADVIL [Suspect]
     Active Substance: IBUPROFEN
     Dosage: 2 DF, UNK
     Route: 064
     Dates: start: 201312
  2. SPIFEN [Suspect]
     Active Substance: IBUPROFEN
     Dosage: 4 DF, UNK
     Route: 064
     Dates: start: 201312

REACTIONS (6)
  - Foetal growth restriction [Not Recovered/Not Resolved]
  - Congenital cytomegalovirus infection [Unknown]
  - Tobacco withdrawal symptoms [Unknown]
  - Maternal exposure during pregnancy [Not Recovered/Not Resolved]
  - Tremor [Unknown]
  - Microcephaly [Unknown]

NARRATIVE: CASE EVENT DATE: 20140113
